FAERS Safety Report 24907511 (Version 2)
Quarter: 2025Q2

REPORT INFORMATION
  Report Type: Spontaneous
  Country: GB (occurrence: GB)
  Receive Date: 20250131
  Receipt Date: 20250403
  Transmission Date: 20250716
  Serious: Yes (Other)
  Sender: ALEXION PHARMACEUTICALS
  Company Number: GB-002147023-NVSC2025GB012344

PATIENT
  Age: 56 Year

DRUGS (13)
  1. FULVESTRANT [Suspect]
     Active Substance: FULVESTRANT
     Indication: Product used for unknown indication
     Route: 065
  2. FULVESTRANT [Suspect]
     Active Substance: FULVESTRANT
  3. CARBOPLATIN [Suspect]
     Active Substance: CARBOPLATIN
     Indication: Product used for unknown indication
     Route: 065
  4. DOCETAXEL [Suspect]
     Active Substance: DOCETAXEL
     Indication: Product used for unknown indication
     Route: 065
  5. PACLITAXEL [Suspect]
     Active Substance: PACLITAXEL
     Indication: Product used for unknown indication
     Route: 065
  6. CAPECITABINE [Suspect]
     Active Substance: CAPECITABINE
     Indication: Product used for unknown indication
     Route: 065
  7. TAMOXIFEN CITRATE [Suspect]
     Active Substance: TAMOXIFEN CITRATE
     Indication: Product used for unknown indication
     Route: 065
  8. PALBOCICLIB [Suspect]
     Active Substance: PALBOCICLIB
     Indication: Breast cancer
     Route: 065
  9. EXEMESTANE [Suspect]
     Active Substance: EXEMESTANE
     Indication: Product used for unknown indication
     Route: 065
  10. FEMARA [Suspect]
     Active Substance: LETROZOLE
     Indication: Breast cancer
     Route: 065
  11. AFINITOR [Suspect]
     Active Substance: EVEROLIMUS
     Indication: Breast cancer
     Route: 065
  12. AFINITOR [Suspect]
     Active Substance: EVEROLIMUS
  13. LETROZOLE [Suspect]
     Active Substance: LETROZOLE
     Indication: Product used for unknown indication

REACTIONS (1)
  - Metastases to abdominal cavity [Unknown]
